FAERS Safety Report 16663360 (Version 1)
Quarter: 2019Q3

REPORT INFORMATION
  Report Type: Spontaneous
  Country: NL (occurrence: NL)
  Receive Date: 20190802
  Receipt Date: 20190802
  Transmission Date: 20191004
  Serious: Yes (Hospitalization, Disabling, Other)
  Sender: FDA-Public Use
  Company Number: NL-PFIZER INC-2019325716

PATIENT
  Sex: Female

DRUGS (13)
  1. CINNARIZINE [Concomitant]
     Active Substance: CINNARIZINE
     Dosage: UNK
  2. INSPRA [Suspect]
     Active Substance: EPLERENONE
     Indication: CARDIOVASCULAR DISORDER
     Dosage: 25 MG, UNK (HEART AND VESSELS)
     Dates: start: 2018
  3. TRAMADOL. [Concomitant]
     Active Substance: TRAMADOL
     Dosage: UNK
  4. PERINDOPRIL ERBUMINE. [Concomitant]
     Active Substance: PERINDOPRIL ERBUMINE
     Dosage: UNK
  5. DIAZEPAM. [Concomitant]
     Active Substance: DIAZEPAM
     Dosage: 1 DF, UNK (SOMETIMES)
  6. PREDNISOLONE. [Concomitant]
     Active Substance: PREDNISOLONE
     Dosage: UNK
  7. SPIRIVA [Concomitant]
     Active Substance: TIOTROPIUM BROMIDE MONOHYDRATE
     Dosage: UNK
     Dates: start: 2008
  8. PROCORALAN [Concomitant]
     Active Substance: IVABRADINE
     Dosage: UNK, (5)
  9. OMEPRAZOL [Concomitant]
     Active Substance: OMEPRAZOLE
     Dosage: UNK
  10. EZETIMIBE/SIMVASTATIN [Concomitant]
     Dosage: UNK
  11. ACETYLSALICYLZUUR [Concomitant]
     Active Substance: ASPIRIN
     Dosage: UNK
  12. SYMBICORT [Concomitant]
     Active Substance: BUDESONIDE\FORMOTEROL FUMARATE DIHYDRATE
     Dosage: UNK
     Dates: start: 2008
  13. NAPROXEN. [Concomitant]
     Active Substance: NAPROXEN
     Dosage: UNK

REACTIONS (1)
  - Pneumonia [Not Recovered/Not Resolved]
